FAERS Safety Report 6349615-4 (Version None)
Quarter: 2009Q3

REPORT INFORMATION
  Report Type: 
  Country: None (occurrence: None)
  Receive Date: 20090911
  Receipt Date: 20090911
  Transmission Date: 20100115
  Serious: Yes (Hospitalization)
  Sender: FDA-Public Use
  Company Number: IT-WYE-G03910209

PATIENT
  Sex: Male

DRUGS (9)
  1. TYGACIL [Suspect]
     Indication: CHOLANGITIS
     Route: 051
     Dates: start: 20090507, end: 20090518
  2. LASIX [Concomitant]
     Dosage: NOT PROVIDED
     Dates: start: 20090507, end: 20090614
  3. ASPIRIN [Concomitant]
     Dosage: NOT PROVIDED
     Dates: start: 20090507, end: 20090614
  4. DELTACORTENE [Concomitant]
     Dosage: NOT PROVIDED
     Dates: start: 20090602, end: 20090614
  5. ZANEDIP [Concomitant]
     Dosage: NOT PROVIDED
     Dates: start: 20090521, end: 20090614
  6. MYCOSTATIN [Concomitant]
     Dosage: NOT PROVIDED
     Dates: start: 20090605, end: 20090614
  7. DIFLUCAN [Concomitant]
     Dosage: NOT PROVIDED
     Dates: start: 20090605, end: 20090614
  8. LANSOPRAZOLE [Concomitant]
     Dosage: NOT PROVIDED
     Dates: start: 20090507, end: 20090614
  9. DEURSIL [Concomitant]
     Dosage: NOT PROVIDED
     Dates: start: 20090516, end: 20090614

REACTIONS (1)
  - JAUNDICE CHOLESTATIC [None]
